FAERS Safety Report 9633465 (Version 2)
Quarter: 2015Q2

REPORT INFORMATION
  Report Type: Report from Study
  Country: US (occurrence: US)
  Receive Date: 20131021
  Receipt Date: 20150408
  Transmission Date: 20150821
  Serious: Yes (Death, Hospitalization)
  Sender: FDA-Public Use
  Company Number: US-SA-2013SA105303

PATIENT
  Age: 54 Year
  Sex: Male

DRUGS (1)
  1. FABRAZYME [Suspect]
     Active Substance: AGALSIDASE BETA
     Indication: FABRY^S DISEASE
     Route: 042
     Dates: start: 20031110, end: 20150304

REACTIONS (4)
  - Localised infection [Unknown]
  - Immobile [Unknown]
  - Death [Fatal]
  - Nervous system disorder [Unknown]

NARRATIVE: CASE EVENT DATE: 20150329
